FAERS Safety Report 15625740 (Version 1)
Quarter: 2018Q4

REPORT INFORMATION
  Report Type: Spontaneous
  Country: US (occurrence: US)
  Receive Date: 20181115
  Receipt Date: 20181115
  Transmission Date: 20190205
  Serious: Yes (Other)
  Sender: FDA-Public Use
  Company Number: None

PATIENT
  Sex: Male

DRUGS (7)
  1. VERAPAMIL [Concomitant]
     Active Substance: VERAPAMIL HYDROCHLORIDE
  2. OMEGA - 3 [Concomitant]
  3. RESTASIS [Concomitant]
     Active Substance: CYCLOSPORINE
  4. PAZEO [Concomitant]
     Active Substance: OLOPATADINE HYDROCHLORIDE
  5. BYSTOLIC [Concomitant]
     Active Substance: NEBIVOLOL HYDROCHLORIDE
  6. ROSUVASTATIN. [Concomitant]
     Active Substance: ROSUVASTATIN
  7. ENBREL [Suspect]
     Active Substance: ETANERCEPT
     Indication: ARTHRITIS
     Dosage: ?          OTHER FREQUENCY:QW;?
     Route: 058
     Dates: start: 20180404

REACTIONS (4)
  - Rheumatoid arthritis [None]
  - Rash [None]
  - Product dose omission [None]
  - Discomfort [None]
